FAERS Safety Report 15209962 (Version 1)
Quarter: 2018Q3

REPORT INFORMATION
  Report Type: Spontaneous
  Country: US (occurrence: US)
  Receive Date: 20180727
  Receipt Date: 20180727
  Transmission Date: 20181010
  Serious: No
  Sender: FDA-Public Use
  Company Number: US-SUNOVION-2018SUN002850

PATIENT
  Sex: Female

DRUGS (1)
  1. SEEBRI [Suspect]
     Active Substance: GLYCOPYRRONIUM
     Dosage: 15.6 MG, BID
     Route: 055

REACTIONS (2)
  - Respiratory tract irritation [Unknown]
  - Cough [Unknown]
